FAERS Safety Report 6274872-2 (Version None)
Quarter: 2009Q3

REPORT INFORMATION
  Report Type: 
  Country: None (occurrence: None)
  Receive Date: 20090721
  Receipt Date: 20090715
  Transmission Date: 20100115
  Serious: Yes (Other)
  Sender: FDA-Public Use
  Company Number: GB-BAYER-200912544BNE

PATIENT
  Age: 28 Year
  Sex: Female
  Weight: 60 kg

DRUGS (2)
  1. BETAFERON [Suspect]
     Indication: MULTIPLE SCLEROSIS
     Dosage: FIRST INJECTION
     Route: 058
     Dates: start: 20090625
  2. BETAFERON [Suspect]
     Dosage: FIRST INJECTION
     Route: 058
     Dates: start: 20090627

REACTIONS (9)
  - CHILLS [None]
  - EYE SWELLING [None]
  - LIP SWELLING [None]
  - LOCALISED OEDEMA [None]
  - MUSCULOSKELETAL CHEST PAIN [None]
  - PHARYNGEAL OEDEMA [None]
  - SHOCK [None]
  - SWELLING FACE [None]
  - TREMOR [None]
